FAERS Safety Report 21408119 (Version 1)
Quarter: 2022Q4

REPORT INFORMATION
  Report Type: Spontaneous
  Country: US (occurrence: US)
  Receive Date: 20221004
  Receipt Date: 20221004
  Transmission Date: 20230112
  Serious: No
  Sender: FDA-Public Use
  Company Number: US-AMRYT PHARMACEUTICALS DAC-AEGR006019

PATIENT
  Sex: Female
  Weight: 88.889 kg

DRUGS (15)
  1. MYCAPSSA [Suspect]
     Active Substance: OCTREOTIDE
     Indication: Acromegaly
     Dosage: 20 MILLIGRAM, QD
     Dates: start: 202104
  2. MYCAPSSA [Suspect]
     Active Substance: OCTREOTIDE
     Dosage: 20 MILLIGRAM, BID
  3. MYCAPSSA [Suspect]
     Active Substance: OCTREOTIDE
     Dosage: 20 MILLIGRAM, TID
  4. MYCAPSSA [Suspect]
     Active Substance: OCTREOTIDE
     Dosage: 40 MILLIGRAM (TWO 20 MG), BID
     Route: 048
     Dates: end: 202207
  5. DESMOPRESSIN ACETATE [Concomitant]
     Active Substance: DESMOPRESSIN ACETATE
     Indication: Diabetes insipidus
     Dosage: 0.1 MILLIGRAM, BID
     Route: 048
     Dates: start: 202012
  6. PRASTERONE [Concomitant]
     Active Substance: PRASTERONE
     Indication: Glucocorticoid deficiency
     Dosage: 10 MILLIGRAM, QD
     Route: 048
     Dates: start: 202103
  7. PRASTERONE [Concomitant]
     Active Substance: PRASTERONE
     Indication: Hormone replacement therapy
  8. EPLERENONE [Concomitant]
     Active Substance: EPLERENONE
     Indication: Product used for unknown indication
     Dosage: 25 MILLIGRAM, BID
     Route: 048
     Dates: start: 202109
  9. ESTRADIOL [Concomitant]
     Active Substance: ESTRADIOL
     Indication: Hormone replacement therapy
     Dosage: 0.5 MILLIGRAM, QD
     Route: 048
     Dates: start: 202111
  10. PROGESTERONE [Concomitant]
     Active Substance: PROGESTERONE
     Indication: Hormone replacement therapy
     Dosage: 600 MILLIGRAM,( 3 TABS), QD
     Route: 048
     Dates: start: 202103
  11. LEVOTHYROXINE [Concomitant]
     Active Substance: LEVOTHYROXINE
     Indication: Hypothyroidism
     Dosage: 100 MICROGRAM, QD
     Route: 048
  12. LIOTHYRONINE [Concomitant]
     Active Substance: LIOTHYRONINE
     Indication: Hypothyroidism
     Dosage: 30 MICROGRAM, QD
     Route: 048
  13. PREDNISONE [Concomitant]
     Active Substance: PREDNISONE
     Indication: Inflammation
     Dosage: 5 MILLIGRAM, PRN (1 OR 2 TAB)
     Route: 048
     Dates: start: 202103
  14. NALTREXONE [Concomitant]
     Active Substance: NALTREXONE
     Indication: Inflammation
     Dosage: 4.5 MILLIGRAM, QD
     Route: 048
     Dates: start: 202103
  15. HYDROCORTISONE [Concomitant]
     Active Substance: HYDROCORTISONE
     Indication: Glucocorticoid deficiency
     Dosage: 20 MILLIGRAM, BID
     Route: 048

REACTIONS (6)
  - Feeling abnormal [Unknown]
  - Gallbladder disorder [Unknown]
  - Fatigue [Unknown]
  - Diarrhoea [Unknown]
  - Insurance issue [Unknown]
  - Product prescribing issue [Unknown]
